FAERS Safety Report 6321265-5 (Version None)
Quarter: 2009Q3

REPORT INFORMATION
  Report Type: 
  Country: None (occurrence: None)
  Receive Date: 20090822
  Receipt Date: 20090112
  Transmission Date: 20100115
  Serious: No
  Sender: FDA-Public Use
  Company Number: US-ABBOTT-09P-163-0496397-00

PATIENT
  Sex: Female
  Weight: 62.652 kg

DRUGS (4)
  1. NIASPAN [Suspect]
     Indication: HIGH DENSITY LIPOPROTEIN DECREASED
     Dates: start: 20081101, end: 20081101
  2. ASPIRIN [Concomitant]
     Indication: PROPHYLAXIS
     Dates: start: 20081101, end: 20081101
  3. NEXIUM [Concomitant]
     Indication: GASTROOESOPHAGEAL REFLUX DISEASE
  4. MOBIC [Concomitant]
     Indication: OSTEOARTHRITIS

REACTIONS (3)
  - ADVERSE DRUG REACTION [None]
  - FEELING HOT [None]
  - PARAESTHESIA [None]
